FAERS Safety Report 25728753 (Version 4)
Quarter: 2025Q4

REPORT INFORMATION
  Report Type: Spontaneous
  Country: US (occurrence: US)
  Receive Date: 20250826
  Receipt Date: 20251016
  Transmission Date: 20260118
  Serious: Yes (Other)
  Sender: IOVANCE BIOTHERAPEUTICS
  Company Number: US-IOVANCE BIOTHERAPEUTICS, INC-2025IOV000144

PATIENT

DRUGS (5)
  1. AMTAGVI [Suspect]
     Active Substance: LIFILEUCEL
     Indication: Metastatic malignant melanoma
     Dosage: 7.5 - 72 TIL OVER THREE BAGS, IV, X1
     Route: 042
     Dates: start: 20250818, end: 20250818
  2. ALDESLEUKIN [Suspect]
     Active Substance: ALDESLEUKIN
     Indication: Interleukin therapy
     Dosage: 600,000 U/KG, 1 DOSE
     Route: 042
     Dates: start: 20250819, end: 20250819
  3. ALDESLEUKIN [Suspect]
     Active Substance: ALDESLEUKIN
     Dosage: 600,000 U/KG, 2 DOSES
     Route: 042
     Dates: start: 20250821, end: 20250822
  4. CYCLOPHOSPHAMIDE [Suspect]
     Active Substance: CYCLOPHOSPHAMIDE
     Indication: Lymphodepletion
     Dosage: 60 MG/KG X 68.6 KG. Q24 HOURS @ 325 ML/HR, 2 DOSES
     Route: 042
     Dates: start: 20250811, end: 20250812
  5. FLUDARABINE [Suspect]
     Active Substance: FLUDARABINE PHOSPHATE
     Indication: Lymphodepletion
     Dosage: 25 MG/M2 X 1.64 M2 Q24 HOURS @  223.2 ML/HR, 5 DOSES
     Route: 042
     Dates: start: 20250813, end: 20250817

REACTIONS (7)
  - Hypoxia [Recovered/Resolved]
  - Dyspnoea [Recovered/Resolved]
  - Blood pressure increased [Recovered/Resolved]
  - Pulmonary oedema [Recovered/Resolved]
  - Sinus tachycardia [Recovered/Resolved]
  - Throat irritation [Recovered/Resolved]
  - Chills [Recovered/Resolved]

NARRATIVE: CASE EVENT DATE: 20250818
